FAERS Safety Report 9494957 (Version 2)
Quarter: 2014Q1

REPORT INFORMATION
  Report Type: Spontaneous
  Country: US (occurrence: None)
  Receive Date: 20130828
  Receipt Date: 20140306
  Transmission Date: 20141002
  Serious: Yes (Other)
  Sender: FDA-Public Use
  Company Number: JPI-P-034634

PATIENT
  Age: 42 Year
  Sex: Male

DRUGS (1)
  1. XYREM (500 MILLIGRAM/MILLILITERS, SOLUTION) (SODIUM OXYBATE) [Suspect]
     Indication: NARCOLEPSY
     Route: 048
     Dates: start: 20130109, end: 2013

REACTIONS (5)
  - Convulsion [None]
  - Confusional state [None]
  - Stress [None]
  - Sleep disorder [None]
  - Abnormal sleep-related event [None]
